FAERS Safety Report 6241714-0 (Version None)
Quarter: 2009Q2

REPORT INFORMATION
  Report Type: 
  Country: None (occurrence: None)
  Receive Date: 20090617
  Receipt Date: 20071116
  Transmission Date: 20091009
  Serious: No
  Sender: FDA-Public Use
  Company Number: 269428

PATIENT
  Age: 73 Year
  Sex: Male

DRUGS (3)
  1. LEVEMIR [Suspect]
     Indication: TYPE 2 DIABETES MELLITUS
     Dosage: SUBCUTANEOUS
     Route: 058
     Dates: start: 20071108
  2. ASPIRIN /00002701/ (ACETYSALICYLIC ACID) [Concomitant]
  3. AVANDIA [Concomitant]

REACTIONS (1)
  - BLOOD GLUCOSE INCREASED [None]
